FAERS Safety Report 8952983 (Version 2)
Quarter: 2013Q1

REPORT INFORMATION
  Report Type: Report from Study
  Country: BR (occurrence: BR)
  Receive Date: 20121203
  Receipt Date: 20130201
  Transmission Date: 20140127
  Serious: Yes (Other)
  Sender: FDA-Public Use
  Company Number: BR-ROCHE-1159388

PATIENT
  Age: 70 Year
  Sex: Female
  Weight: 80 kg

DRUGS (4)
  1. PEG-INTERFERON ALFA 2A [Suspect]
     Indication: HEPATITIS C
     Dosage: THERAPY INTERRUPTED DUE TO LEG PAIN ALLERGY
     Route: 065
     Dates: start: 1991
  2. PEG-INTERFERON ALFA 2A [Suspect]
     Dosage: THERAPY INTERRUPTED DUE TO NAUSEA, GANGILIONARY TUBERCULOSIS, WEIGHT LOSS
     Route: 065
  3. RIBAVIRIN [Concomitant]
     Indication: HEPATITIS C
     Route: 065
     Dates: start: 1991
  4. PARACETAMOL [Concomitant]
     Route: 065

REACTIONS (8)
  - Lymph node tuberculosis [Recovered/Resolved]
  - Pain in extremity [Recovered/Resolved]
  - Hypersensitivity [Recovered/Resolved]
  - Nausea [Unknown]
  - Weight decreased [Recovered/Resolved]
  - Alopecia [Recovered/Resolved]
  - Decreased immune responsiveness [Recovered/Resolved]
  - Haemorrhage [Not Recovered/Not Resolved]
